FAERS Safety Report 5107776-9 (Version None)
Quarter: 2006Q3

REPORT INFORMATION
  Report Type: 
  Country: None (occurrence: None)
  Receive Date: 20060914
  Receipt Date: 20060901
  Transmission Date: 20061208
  Serious: Yes (Hospitalization)
  Sender: FDA-Public Use
  Company Number: S06-FRA-03362-01

PATIENT
  Age: 46 Year
  Sex: Female

DRUGS (5)
  1. SEROPRAM (CITALOPRAM HYDROBROMIDE) [Suspect]
  2. LIORESAL [Suspect]
     Indication: MULTIPLE SCLEROSIS
  3. SOLU-MEDROL [Suspect]
     Indication: MULTIPLE SCLEROSIS
  4. IMOVANE (ZOPICLONE) [Suspect]
  5. REBIF [Suspect]
     Indication: MULTIPLE SCLEROSIS

REACTIONS (7)
  - CAESAREAN SECTION [None]
  - DRUG EXPOSURE DURING PREGNANCY [None]
  - INFECTION [None]
  - OLIGOHYDRAMNIOS [None]
  - PREGNANCY [None]
  - PREMATURE LABOUR [None]
  - PROLONGED LABOUR [None]
